FAERS Safety Report 11389855 (Version 3)
Quarter: 2016Q1

REPORT INFORMATION
  Report Type: Spontaneous
  Country: IT (occurrence: IT)
  Receive Date: 20150818
  Receipt Date: 20160323
  Transmission Date: 20160525
  Serious: Yes (Life-Threatening, Hospitalization)
  Sender: FDA-Public Use
  Company Number: IT-ROCHE-1622022

PATIENT
  Age: 50 Year
  Sex: Male

DRUGS (1)
  1. CAPECITABINE. [Suspect]
     Active Substance: CAPECITABINE
     Indication: COLON NEOPLASM
     Route: 048
     Dates: start: 20150801, end: 20150807

REACTIONS (2)
  - Acute coronary syndrome [Recovered/Resolved]
  - Kounis syndrome [Recovered/Resolved]

NARRATIVE: CASE EVENT DATE: 20150808
